FAERS Safety Report 5132752-X (Version None)
Quarter: 2006Q4

REPORT INFORMATION
  Report Type: 
  Country: None (occurrence: None)
  Receive Date: 20061023
  Receipt Date: 20060927
  Transmission Date: 20070319
  Serious: Yes (Death)
  Sender: FDA-Public Use
  Company Number: JP-BRISTOL-MYERS SQUIBB COMPANY-13531470

PATIENT
  Age: 43 Year
  Sex: Female

DRUGS (11)
  1. ARIPIPRAZOLE [Suspect]
     Indication: SCHIZOPHRENIA
     Dosage: DOSAGE FOR THIS DRUG KEPT CHANGING
     Route: 048
     Dates: start: 20060811, end: 20060922
  2. PEROSPIRONE [Suspect]
     Indication: SCHIZOPHRENIA
     Route: 048
  3. LEVOMEPROMAZINE MALEATE [Concomitant]
     Indication: SCHIZOPHRENIA
     Dosage: UNKNOWN TO 24-AUG-2006: 25MG; 25-AUG-2006 TO 22-SEP-2006: 50 MG
     Route: 048
     Dates: start: 20060825, end: 20060922
  4. PROMETHAZINE [Concomitant]
     Indication: PARKINSONISM
     Route: 048
     Dates: end: 20060922
  5. NITRAZEPAM [Concomitant]
     Route: 048
     Dates: end: 20060922
  6. BIPERIDEN HYDROCHLORIDE TAB [Concomitant]
     Indication: PARKINSONISM
     Dosage: UNKNOWN TO 07-SEP-2006: 3MG; 08-SEP-2006 TO 22-SEP-2006: 2MG
     Route: 048
     Dates: start: 20060908, end: 20060922
  7. SENNOSIDE [Concomitant]
     Indication: CONSTIPATION
     Route: 048
     Dates: end: 20060922
  8. BROMPERIDOL [Concomitant]
     Indication: SCHIZOPHRENIA
     Route: 048
     Dates: end: 20060922
  9. PRANLUKAST [Concomitant]
     Route: 048
  10. THEOPHYLLINE [Concomitant]
     Route: 048
  11. FLUTICASONE PROPIONATE [Concomitant]
     Route: 055

REACTIONS (1)
  - COMPLETED SUICIDE [None]
